FAERS Safety Report 19365781 (Version 17)
Quarter: 2022Q1

REPORT INFORMATION
  Report Type: Spontaneous
  Country: GB (occurrence: None)
  Receive Date: 20210602
  Receipt Date: 20220321
  Transmission Date: 20220424
  Serious: Yes (Other)
  Sender: FDA-Public Use
  Company Number: 2021A470222

PATIENT
  Age: 73 Year
  Sex: Female
  Weight: 48 kg

DRUGS (85)
  1. OMEPRAZOLE [Suspect]
     Active Substance: OMEPRAZOLE
     Indication: Product used for unknown indication
     Dosage: 20 MG, QD (20 MILLIGRAM, ONCE A DAY, UNSPECIFIED,EVERY MORNING
     Route: 048
  2. OMEPRAZOLE [Suspect]
     Active Substance: OMEPRAZOLE
     Indication: Product used for unknown indication
     Dosage: 10 MILLIGRAM, QD
     Route: 065
  3. OMEPRAZOLE [Suspect]
     Active Substance: OMEPRAZOLE
     Indication: Product used for unknown indication
     Dosage: 20 MILLIGRAM, QD
     Route: 065
  4. OMEPRAZOLE [Suspect]
     Active Substance: OMEPRAZOLE
     Indication: Product used for unknown indication
     Dosage: 20 MILLIGRAM, ONCE A DAY, UNSPECIFIED, EVERY MORNING
     Route: 065
  5. OMEPRAZOLE [Suspect]
     Active Substance: OMEPRAZOLE
     Indication: Product used for unknown indication
     Dosage: 20 MILLIGRAM, ONCE A DAY, UNSPECIFIED, EVERY MORNING
     Route: 048
  6. RAMIPRIL [Suspect]
     Active Substance: RAMIPRIL
     Indication: Product used for unknown indication
     Dosage: 10 MG, QD (UNSPECIFIED, EVERY MORNING)
     Route: 065
  7. RAMIPRIL [Suspect]
     Active Substance: RAMIPRIL
     Indication: Product used for unknown indication
     Dosage: 10 MILLIGRAM, ONCE A DAY (EVERY MORNING)
     Route: 048
  8. RAMIPRIL [Suspect]
     Active Substance: RAMIPRIL
     Indication: Product used for unknown indication
     Dosage: 10 MILLIGRAM, QD, ONCE A DAY, DOSAGE FORM: UNSPECIFIED,EVERY MORNING
     Route: 065
  9. DEXAMETHASONE [Suspect]
     Active Substance: DEXAMETHASONE
     Indication: Product used for unknown indication
     Dosage: 20 MG, QD
     Route: 065
     Dates: start: 20171102, end: 20171106
  10. DEXAMETHASONE [Suspect]
     Active Substance: DEXAMETHASONE
     Indication: Product used for unknown indication
     Dosage: 20 MG, QD
     Route: 065
  11. DEXAMETHASONE [Suspect]
     Active Substance: DEXAMETHASONE
     Indication: Product used for unknown indication
     Dosage: 20 MILLIGRAM DAILY;MEDICATION ERROR, MISUSE, ABUSE, OFF LABEL USE
     Route: 065
     Dates: start: 20171102, end: 20171106
  12. DEXAMETHASONE [Suspect]
     Active Substance: DEXAMETHASONE
     Indication: Product used for unknown indication
     Dosage: 20 MG, UNK
     Route: 065
     Dates: start: 20171102, end: 20171106
  13. DEXAMETHASONE [Suspect]
     Active Substance: DEXAMETHASONE
     Indication: Product used for unknown indication
     Dosage: 20 MG, QD, DOSAGE FORM: UNSPECIFIED
     Route: 065
     Dates: start: 20171102, end: 20171106
  14. DEXAMETHASONE [Suspect]
     Active Substance: DEXAMETHASONE
     Indication: Product used for unknown indication
     Dosage: 100 MG
     Route: 065
  15. METOCLOPRAMIDE HYDROCHLORIDE [Suspect]
     Active Substance: METOCLOPRAMIDE HYDROCHLORIDE
     Indication: Product used for unknown indication
     Dosage: 10 MILLIGRAM, AS NECESSARYMEDICATION ERROR, MISUSE,ABUSE, OFF LABEL USE
     Route: 065
  16. METOCLOPRAMIDE HYDROCHLORIDE [Suspect]
     Active Substance: METOCLOPRAMIDE HYDROCHLORIDE
     Indication: Product used for unknown indication
     Dosage: 20 MILLIGRAM, QD
     Route: 065
  17. METOCLOPRAMIDE HYDROCHLORIDE [Suspect]
     Active Substance: METOCLOPRAMIDE HYDROCHLORIDE
     Indication: Product used for unknown indication
     Dosage: 10 MILLIGRAM, PRN
     Route: 065
  18. METOCLOPRAMIDE HYDROCHLORIDE [Suspect]
     Active Substance: METOCLOPRAMIDE HYDROCHLORIDE
     Indication: Product used for unknown indication
     Dosage: 20 MILLIGRAM, QD
     Route: 065
  19. BENDROFLUMETHIAZIDE [Suspect]
     Active Substance: BENDROFLUMETHIAZIDE
     Indication: Product used for unknown indication
     Route: 065
  20. BENDROFLUMETHIAZIDE [Suspect]
     Active Substance: BENDROFLUMETHIAZIDE
     Indication: Product used for unknown indication
     Dosage: UNK1.8 MG/M2 Q_CYCLE / 1.3 MG/M2 DAILY /1.8UNK3.0MG UNKNOWN
     Route: 065
  21. BENDROFLUMETHIAZIDE [Suspect]
     Active Substance: BENDROFLUMETHIAZIDE
     Indication: Product used for unknown indication
     Dosage: 2.5 MG, QD2.5MG UNKNOWN
     Route: 065
  22. BENDROFLUMETHIAZIDE [Suspect]
     Active Substance: BENDROFLUMETHIAZIDE
     Indication: Product used for unknown indication
     Dosage: 2 MG, QD2.0MG UNKNOWN
     Route: 065
     Dates: start: 20171103, end: 20171103
  23. BENDROFLUMETHIAZIDE [Suspect]
     Active Substance: BENDROFLUMETHIAZIDE
     Indication: Product used for unknown indication
     Dosage: 2.0MG UNKNOWN
     Route: 065
     Dates: start: 20171110, end: 20171114
  24. BENDROFLUMETHIAZIDE [Suspect]
     Active Substance: BENDROFLUMETHIAZIDE
     Indication: Product used for unknown indication
     Dosage: 10 MG10.0MG UNKNOWN
     Route: 065
  25. BENDROFLUMETHIAZIDE [Suspect]
     Active Substance: BENDROFLUMETHIAZIDE
     Indication: Product used for unknown indication
     Dosage: 3 MG UNKNOWN
     Route: 065
     Dates: start: 20171107
  26. BENDROFLUMETHIAZIDE [Suspect]
     Active Substance: BENDROFLUMETHIAZIDE
     Indication: Product used for unknown indication
     Dosage: 3 MG UNKNOWN
     Route: 065
     Dates: start: 20171107
  27. PREDNISONE [Suspect]
     Active Substance: PREDNISONE
     Indication: Plasma cell leukaemia
     Dosage: 70 MILLIGRAM, QD (70 MG, QD (1 CYCLE))
     Route: 065
  28. PREDNISONE [Suspect]
     Active Substance: PREDNISONE
     Indication: Plasma cell leukaemia
     Dosage: 70 MILLIGRAM, QD/START DATE:03-NOV-2017
     Route: 065
     Dates: start: 20171103, end: 20171103
  29. PREDNISONE [Suspect]
     Active Substance: PREDNISONE
     Indication: Plasma cell leukaemia
     Dosage: 70 MILLIGRAM, QD. 1 CYCLE/START DATE:06-NOV-2017
     Route: 065
     Dates: start: 20171106, end: 20171106
  30. PREDNISONE [Suspect]
     Active Substance: PREDNISONE
     Indication: Plasma cell leukaemia
     Dosage: 70 MILLIGRAM (70 MG)
     Route: 065
  31. SERTRALINE [Suspect]
     Active Substance: SERTRALINE HYDROCHLORIDE
     Indication: Product used for unknown indication
     Dosage: 50 MG, QD
     Route: 065
  32. ALLOPURINOL [Suspect]
     Active Substance: ALLOPURINOL
     Indication: Product used for unknown indication
     Dosage: 300 MILLIGRAM DAILY;
     Route: 065
     Dates: start: 20171104, end: 20171120
  33. ALLOPURINOL [Suspect]
     Active Substance: ALLOPURINOL
     Indication: Product used for unknown indication
     Dosage: 300 UNK
     Route: 065
     Dates: start: 20171120
  34. ALLOPURINOL [Suspect]
     Active Substance: ALLOPURINOL
     Indication: Product used for unknown indication
     Dosage: DOSAGE FORM: UNSPECIFIED
     Route: 065
     Dates: start: 20171120
  35. ALLOPURINOL [Suspect]
     Active Substance: ALLOPURINOL
     Indication: Product used for unknown indication
     Dosage: 300 MILLIGRAM (THERAPY IS ONGOING)
     Route: 065
     Dates: start: 20171120
  36. ALLOPURINOL [Suspect]
     Active Substance: ALLOPURINOL
     Indication: Product used for unknown indication
     Dosage: 300 MILLIGRAM DAILY;MEDICATION ERROR, MISUSE,ABUSE, OFF LABEL USE
     Route: 065
     Dates: start: 20171104
  37. MELPHALAN [Suspect]
     Active Substance: MELPHALAN
     Indication: Plasma cell leukaemia
     Dosage: 14 MG, QD
     Route: 065
     Dates: start: 20171103, end: 20171103
  38. MELPHALAN [Suspect]
     Active Substance: MELPHALAN
     Indication: Plasma cell leukaemia
     Dosage: 14 MG, QD (DAILY1 CYCLE)
     Route: 065
     Dates: start: 20171107, end: 20171110
  39. MELPHALAN [Suspect]
     Active Substance: MELPHALAN
     Indication: Plasma cell leukaemia
     Route: 065
     Dates: start: 20171106, end: 20171106
  40. MELPHALAN [Suspect]
     Active Substance: MELPHALAN
     Indication: Plasma cell leukaemia
     Dosage: 1 - DAILY
     Route: 065
     Dates: start: 20171107, end: 20171110
  41. MELPHALAN [Suspect]
     Active Substance: MELPHALAN
     Indication: Plasma cell leukaemia
     Dosage: 1 CYCLE
     Route: 065
     Dates: start: 20171110, end: 20171114
  42. MELPHALAN [Suspect]
     Active Substance: MELPHALAN
     Indication: Plasma cell leukaemia
     Dosage: 14 MILLIGRAM, 1 CYCLE
     Route: 065
  43. MELPHALAN [Suspect]
     Active Substance: MELPHALAN
     Indication: Plasma cell leukaemia
     Dosage: UNK
     Route: 065
     Dates: start: 201711, end: 20171107
  44. MELPHALAN [Suspect]
     Active Substance: MELPHALAN
     Indication: Plasma cell leukaemia
     Dosage: UNK
     Route: 065
     Dates: start: 20171110, end: 20171114
  45. MELPHALAN [Suspect]
     Active Substance: MELPHALAN
     Indication: Plasma cell leukaemia
     Dosage: UNK
     Route: 065
     Dates: start: 20171110, end: 20171110
  46. MELPHALAN [Suspect]
     Active Substance: MELPHALAN
     Indication: Plasma cell leukaemia
     Dosage: UNK
     Route: 065
     Dates: start: 20171103, end: 20171103
  47. SODIUM CHLORIDE [Suspect]
     Active Substance: SODIUM CHLORIDE
     Indication: Medication dilution
     Dosage: UNKNOWN (1 CYCLE)
     Route: 041
     Dates: start: 20171103, end: 20171103
  48. SODIUM CHLORIDE [Suspect]
     Active Substance: SODIUM CHLORIDE
     Indication: Medication dilution
     Dosage: UNKNOWN
     Route: 041
     Dates: start: 20171103, end: 20171106
  49. SODIUM CHLORIDE [Suspect]
     Active Substance: SODIUM CHLORIDE
     Indication: Medication dilution
     Route: 041
     Dates: start: 20171106, end: 20171106
  50. SODIUM CHLORIDE [Suspect]
     Active Substance: SODIUM CHLORIDE
     Indication: Medication dilution
     Dosage: UNKNOWN, QD
     Route: 041
     Dates: start: 20171107
  51. SODIUM CHLORIDE [Suspect]
     Active Substance: SODIUM CHLORIDE
     Indication: Medication dilution
     Dosage: UNK (1 CYCLE)
     Route: 065
     Dates: start: 20171110, end: 20171110
  52. SODIUM CHLORIDE [Suspect]
     Active Substance: SODIUM CHLORIDE
     Indication: Medication dilution
     Dosage: UNK (1 CYCLE)
     Route: 041
     Dates: start: 20171110, end: 20171114
  53. FENTANYL CITRATE [Suspect]
     Active Substance: FENTANYL CITRATE
     Indication: Product used for unknown indication
     Dosage: 12 MICROGRAMS PER INHALATION12.0UG/INHAL UNKNOWN
     Route: 055
     Dates: start: 20171108
  54. FENTANYL CITRATE [Suspect]
     Active Substance: FENTANYL CITRATE
     Indication: Product used for unknown indication
     Dosage: UNK, Q1HR UNKNOWN
     Route: 055
     Dates: start: 20171108
  55. FENTANYL CITRATE [Suspect]
     Active Substance: FENTANYL CITRATE
     Indication: Product used for unknown indication
     Dosage: 12 MICROGRAMS PER INHALATION12.0UG/INHAL UNKNOWN
     Route: 055
     Dates: start: 20171108
  56. FENTANYL CITRATE [Suspect]
     Active Substance: FENTANYL CITRATE
     Indication: Product used for unknown indication
     Dosage: 12 MICROGRAMS PER INHALATION12.0UG/INHAL UNKNOWN
     Route: 055
     Dates: start: 20171108
  57. FENTANYL CITRATE [Suspect]
     Active Substance: FENTANYL CITRATE
     Indication: Product used for unknown indication
     Dosage: 12 MICROGRAMS PER INHALATION12.0UG/INHAL UNKNOWN
     Route: 055
     Dates: start: 20171108
  58. BORTEZOMIB [Suspect]
     Active Substance: BORTEZOMIB
     Indication: Plasma cell leukaemia
     Dosage: 2 MILLIGRAMS PER SQUARE METRE
     Route: 065
     Dates: start: 20171110, end: 20171114
  59. BORTEZOMIB [Suspect]
     Active Substance: BORTEZOMIB
     Indication: Plasma cell leukaemia
     Dosage: 2 MG/M2, QCY
     Route: 065
     Dates: start: 20171103, end: 20171103
  60. BORTEZOMIB [Suspect]
     Active Substance: BORTEZOMIB
     Indication: Plasma cell leukaemia
     Dosage: 2 MG/M2
     Route: 065
     Dates: start: 20171107
  61. BORTEZOMIB [Suspect]
     Active Substance: BORTEZOMIB
     Indication: Plasma cell leukaemia
     Dosage: 1.8 MG/M2, (LYOPHILIZED POWDER)
     Route: 058
     Dates: start: 20171110, end: 20171114
  62. BORTEZOMIB [Suspect]
     Active Substance: BORTEZOMIB
     Indication: Plasma cell leukaemia
     Dosage: 1.3 MG/M2, (1 CYCLE)
     Route: 058
     Dates: start: 20171106, end: 20171106
  63. BORTEZOMIB [Suspect]
     Active Substance: BORTEZOMIB
     Indication: Plasma cell leukaemia
     Dosage: 1.3 MG/M2, 1 CYCLE
     Route: 058
     Dates: start: 20171110, end: 20171110
  64. BORTEZOMIB [Suspect]
     Active Substance: BORTEZOMIB
     Indication: Plasma cell leukaemia
     Dosage: 1 MG/M2
     Route: 065
     Dates: start: 20171106, end: 20171106
  65. BORTEZOMIB [Suspect]
     Active Substance: BORTEZOMIB
     Indication: Plasma cell leukaemia
     Dosage: 1.8 MG/M2, 1 CYCLE
     Route: 058
     Dates: start: 20171103, end: 20171103
  66. BORTEZOMIB [Suspect]
     Active Substance: BORTEZOMIB
     Indication: Plasma cell leukaemia
     Dosage: 1.8 MG/M2,1 CYCLE
     Route: 058
     Dates: start: 20171107
  67. BORTEZOMIB [Suspect]
     Active Substance: BORTEZOMIB
     Indication: Plasma cell leukaemia
     Dosage: UNK (LYOPHILIZED POWDER)
     Route: 058
  68. BORTEZOMIB [Suspect]
     Active Substance: BORTEZOMIB
     Indication: Plasma cell leukaemia
     Dosage: UNK
     Route: 065
  69. BORTEZOMIB [Suspect]
     Active Substance: BORTEZOMIB
     Indication: Plasma cell leukaemia
     Dosage: 1.8 MG
     Route: 058
     Dates: start: 20171107, end: 201711
  70. FENTANYL [Suspect]
     Active Substance: FENTANYL
     Indication: Product used for unknown indication
     Route: 065
     Dates: start: 20171108
  71. FENTANYL [Suspect]
     Active Substance: FENTANYL
     Indication: Product used for unknown indication
     Dosage: 12 MG, QH
     Route: 065
     Dates: start: 20171108
  72. FENTANYL [Suspect]
     Active Substance: FENTANYL
     Indication: Product used for unknown indication
     Dosage: 12 MICROGRAMS PER INHALATION
     Route: 062
     Dates: start: 20171108
  73. FENTANYL [Suspect]
     Active Substance: FENTANYL
     Indication: Product used for unknown indication
     Dosage: UNK, Q1HR
     Route: 062
     Dates: start: 20171108
  74. VELCADE [Suspect]
     Active Substance: BORTEZOMIB
     Indication: Plasma cell leukaemia
     Dosage: UNKNOWN (LYOPHILIZED POWDER)
     Route: 058
  75. VELCADE [Suspect]
     Active Substance: BORTEZOMIB
     Indication: Plasma cell leukaemia
     Dosage: UNKNOWN
     Route: 058
  76. VELCADE [Suspect]
     Active Substance: BORTEZOMIB
     Indication: Plasma cell leukaemia
     Dosage: 1.8 MG/M2, 1 CYCLE1.8MG/M2 EVERY CYCLE
     Route: 058
     Dates: start: 20171103, end: 20171103
  77. VELCADE [Suspect]
     Active Substance: BORTEZOMIB
     Indication: Plasma cell leukaemia
     Dosage: 1.8 MG/M21.8MG/M2 EVERY CYCLE
     Route: 058
     Dates: start: 20171107
  78. VELCADE [Suspect]
     Active Substance: BORTEZOMIB
     Indication: Plasma cell leukaemia
     Dosage: 1.8 MG/M2 (LYOPHILIZED POWDER)1.8MG/M2 EVERY CYCLE
     Route: 058
     Dates: start: 20171110, end: 20171114
  79. VELCADE [Suspect]
     Active Substance: BORTEZOMIB
     Indication: Plasma cell leukaemia
     Dosage: 1.3 MG/M2, 1 CYCLE1.3MG/M2 EVERY CYCLE
     Route: 058
     Dates: start: 20171103, end: 20171103
  80. VELCADE [Suspect]
     Active Substance: BORTEZOMIB
     Indication: Plasma cell leukaemia
     Dosage: 1.3 MG/M2, 1 CYCLE1.3MG/M2 EVERY CYCLE
     Route: 058
     Dates: start: 20171106, end: 20171106
  81. VELCADE [Suspect]
     Active Substance: BORTEZOMIB
     Indication: Plasma cell leukaemia
     Dosage: 1.3 MG/M2, 1 CYCLE1.3MG/M2 EVERY CYCLE
     Route: 058
     Dates: start: 20171110, end: 20171110
  82. VELCADE [Suspect]
     Active Substance: BORTEZOMIB
     Indication: Plasma cell leukaemia
     Dosage: 1.3 MILLIGRAM/SQ. METER, CYCLE (START DATE: 03-NOV-2017) EVERY CYCLE
     Route: 058
     Dates: start: 20171103, end: 20171103
  83. VELCADE [Suspect]
     Active Substance: BORTEZOMIB
     Indication: Plasma cell leukaemia
     Dosage: 1.3 MILLIGRAM/SQ. METER (1.3 MG/M2, 1 CYCLE)/START DATE: 10-NOV-2017 EVERY CYCLE
     Route: 058
     Dates: end: 20171110
  84. VELCADE [Suspect]
     Active Substance: BORTEZOMIB
     Indication: Plasma cell leukaemia
     Dosage: 1.8 MILLIGRAM/SQ. METER (1.8 MG/M2)/START DATE:07-NOV-2017 EVERY CYCLE
     Route: 058
     Dates: end: 20171107
  85. VELCADE [Suspect]
     Active Substance: BORTEZOMIB
     Indication: Plasma cell leukaemia
     Dosage: 1.3 MILLIGRAM/SQ. METER, CYCLE1.3MG/M2 EVERY CYCLE
     Route: 058
     Dates: start: 20171103, end: 20171103

REACTIONS (14)
  - Hallucination [Recovered/Resolved]
  - Confusional state [Recovered/Resolved]
  - Paranoia [Recovered/Resolved]
  - Disorientation [Recovered/Resolved]
  - Agitation [Recovered/Resolved]
  - Disturbance in social behaviour [Recovered/Resolved]
  - Drug abuse [Unknown]
  - Abnormal behaviour [Recovered/Resolved]
  - Emotional distress [Not Recovered/Not Resolved]
  - Intentional product misuse [Unknown]
  - Product use in unapproved indication [Unknown]
  - Off label use [Unknown]
  - Medication error [Unknown]
  - Incorrect route of product administration [Unknown]

NARRATIVE: CASE EVENT DATE: 20171107
